FAERS Safety Report 4779714-X (Version None)
Quarter: 2005Q3

REPORT INFORMATION
  Report Type: 
  Country: None (occurrence: None)
  Receive Date: 20050927
  Receipt Date: 20050915
  Transmission Date: 20060218
  Serious: Yes (Hospitalization)
  Sender: FDA-Public Use
  Company Number: JP-BRISTOL-MYERS SQUIBB COMPANY-13111364

PATIENT
  Age: 58 Year
  Sex: Female

DRUGS (2)
  1. PARAPLATIN [Suspect]
     Indication: UTERINE CANCER
     Route: 042
     Dates: start: 20050909, end: 20050909
  2. TAXOL [Suspect]
     Indication: UTERINE CANCER
     Route: 042
     Dates: start: 20050909, end: 20050909

REACTIONS (1)
  - GASTROINTESTINAL HAEMORRHAGE [None]
